FAERS Safety Report 5449115-X (Version None)
Quarter: 2007Q3

REPORT INFORMATION
  Report Type: 
  Country: None (occurrence: None)
  Receive Date: 20070911
  Receipt Date: 20070907
  Transmission Date: 20080115
  Serious: Yes (Death, Other)
  Sender: FDA-Public Use
  Company Number: IT-ELI_LILLY_AND_COMPANY-IT200703001884

PATIENT
  Age: 72 Year
  Sex: Female

DRUGS (2)
  1. GEMZAR [Suspect]
     Indication: BREAST CANCER METASTATIC
     Dosage: 1000 MG/M2, OTHER
     Route: 042
  2. VINORELBINE [Concomitant]
     Indication: BREAST CANCER METASTATIC
     Dosage: D
     Route: 042

REACTIONS (5)
  - ANAEMIA [None]
  - ASTHENIA [None]
  - MALIGNANT NEOPLASM PROGRESSION [None]
  - NAUSEA [None]
  - NEUTROPENIA [None]
